FAERS Safety Report 13849194 (Version 1)
Quarter: 2017Q3

REPORT INFORMATION
  Report Type: Spontaneous
  Country: US (occurrence: US)
  Receive Date: 20170809
  Receipt Date: 20170809
  Transmission Date: 20171127
  Serious: Yes (Other)
  Sender: FDA-Public Use
  Company Number: None

PATIENT
  Age: 86 Year
  Sex: Female
  Weight: 72.58 kg

DRUGS (2)
  1. OLMESARTIN [Concomitant]
     Active Substance: OLMESARTAN
  2. OXYBUTYNIN CHLORIDE. [Suspect]
     Active Substance: OXYBUTYNIN CHLORIDE
     Indication: INCONTINENCE
     Dosage: 10 MG TAB  30 DAY 1 REFILL ONCE DAILY MORN. MOUTH
     Route: 048
     Dates: start: 20170711, end: 20170715

REACTIONS (9)
  - Dry mouth [None]
  - Constipation [None]
  - Headache [None]
  - Vision blurred [None]
  - Nasal congestion [None]
  - Hyperhidrosis [None]
  - Peripheral swelling [None]
  - Dizziness [None]
  - Cough [None]

NARRATIVE: CASE EVENT DATE: 20170715
